FAERS Safety Report 4490097-5 (Version None)
Quarter: 2004Q4

REPORT INFORMATION
  Report Type: 
  Country: None (occurrence: None)
  Receive Date: 20041027
  Receipt Date: 20041019
  Transmission Date: 20050328
  Serious: Yes (Hospitalization)
  Sender: FDA-Public Use
  Company Number: 200415060BCC

PATIENT
  Sex: Female

DRUGS (3)
  1. ALEVE [Suspect]
     Indication: SYSTEMIC LUPUS ERYTHEMATOSUS
     Dosage: 440 MG, TOTAL DAILY, ORAL
     Route: 048
     Dates: start: 19990101
  2. EPOGEN [Concomitant]
  3. ZENPAR [Concomitant]

REACTIONS (3)
  - ANAEMIA [None]
  - ASTHMA [None]
  - PHARMACEUTICAL PRODUCT COMPLAINT [None]
